FAERS Safety Report 17135710 (Version 2)
Quarter: 2019Q4

REPORT INFORMATION
  Report Type: Spontaneous
  Country: AU (occurrence: AU)
  Receive Date: 20191210
  Receipt Date: 20191219
  Transmission Date: 20200122
  Serious: Yes (Other)
  Sender: FDA-Public Use
  Company Number: AU-JNJFOC-20191142410

PATIENT
  Sex: Male

DRUGS (2)
  1. INFLUENZA VACCINE [Suspect]
     Active Substance: INFLUENZA VIRUS VACCINE
     Indication: IMMUNISATION
     Route: 065
     Dates: start: 20190501
  2. INFLIXIMAB, RECOMBINANT [Suspect]
     Active Substance: INFLIXIMAB
     Indication: PRODUCT USED FOR UNKNOWN INDICATION
     Route: 042

REACTIONS (9)
  - Lip swelling [Unknown]
  - Periorbital oedema [Unknown]
  - Anaphylactic reaction [Unknown]
  - Dyspnoea [Unknown]
  - Urticaria [Unknown]
  - Off label use [Unknown]
  - Abdominal discomfort [Unknown]
  - Swelling face [Recovered/Resolved]
  - Product prescribing error [Unknown]

NARRATIVE: CASE EVENT DATE: 20190501
